FAERS Safety Report 13577962 (Version 1)
Quarter: 2017Q2

REPORT INFORMATION
  Report Type: Spontaneous
  Country: US (occurrence: US)
  Receive Date: 20170524
  Receipt Date: 20170524
  Transmission Date: 20170830
  Serious: Yes (Other)
  Sender: FDA-Public Use
  Company Number: US-BAYER-2017-091471

PATIENT
  Age: 75 Year
  Sex: Female
  Weight: 80 kg

DRUGS (6)
  1. MILK OF MAGNESIA ORIGINAL [Concomitant]
     Active Substance: MAGNESIUM HYDROXIDE
     Indication: GASTROINTESTINAL DISORDER
     Dosage: 2 TABLESPOONS
     Route: 048
     Dates: start: 20170412
  2. METAMUCIL [Concomitant]
     Active Substance: PLANTAGO SEED
  3. TRIGLYCERIDES [Concomitant]
  4. BAYER LOW DOSE [Suspect]
     Active Substance: ASPIRIN
     Indication: CEREBROVASCULAR ACCIDENT
     Dosage: 81 MG, QD
     Route: 065
     Dates: start: 2007
  5. MIRALAX [Concomitant]
     Active Substance: POLYETHYLENE GLYCOL 3350
     Indication: GASTROINTESTINAL DISORDER
     Dosage: HALF OF CAPFUL DAILY
     Dates: start: 20170412
  6. BAYER ASPIRIN [Suspect]
     Active Substance: ASPIRIN
     Indication: CEREBROVASCULAR ACCIDENT PROPHYLAXIS
     Dosage: UNK

REACTIONS (7)
  - Off label use [None]
  - Product use in unapproved indication [None]
  - Transient ischaemic attack [Unknown]
  - Product use in unapproved indication [None]
  - Transient ischaemic attack [None]
  - Cerebrovascular accident [Unknown]
  - Cerebrovascular accident [None]

NARRATIVE: CASE EVENT DATE: 2009
